FAERS Safety Report 24965228 (Version 3)
Quarter: 2025Q2

REPORT INFORMATION
  Report Type: Spontaneous
  Country: US (occurrence: US)
  Receive Date: 20250213
  Receipt Date: 20250421
  Transmission Date: 20250716
  Serious: No
  Sender: ROCHE
  Company Number: US-ROCHE-10000206684

PATIENT

DRUGS (2)
  1. TECENTRIQ [Suspect]
     Active Substance: ATEZOLIZUMAB
     Indication: Product used for unknown indication
     Dosage: 5 MINUTES INTO INFUSION
     Route: 042
  2. POLYSORBATE 20 [Concomitant]
     Active Substance: POLYSORBATE 20

REACTIONS (4)
  - Infusion related reaction [Recovered/Resolved]
  - Flushing [Unknown]
  - Dyspnoea [Unknown]
  - Back pain [Unknown]

NARRATIVE: CASE EVENT DATE: 20250205
